FAERS Safety Report 9170640 (Version 1)
Quarter: 2013Q1

REPORT INFORMATION
  Report Type: Spontaneous
  Country: FR (occurrence: FR)
  Receive Date: 20130319
  Receipt Date: 20130319
  Transmission Date: 20140127
  Serious: Yes (Other)
  Sender: FDA-Public Use
  Company Number: FR-COVIDIEN/TYCO HEALTHCARE/MALLINCKRODT-T201301359

PATIENT
  Age: 40 Year
  Sex: Female

DRUGS (1)
  1. OPTIJECT [Suspect]
     Indication: COMPUTERISED TOMOGRAM
     Dosage: 120 ML, 1 IN 1 D
     Route: 042
     Dates: start: 20130221, end: 20130221

REACTIONS (6)
  - Anaphylactoid reaction [Recovered/Resolved]
  - Face oedema [Recovered/Resolved]
  - Pruritus [Recovered/Resolved]
  - Throat irritation [None]
  - Conjunctival hyperaemia [None]
  - Conjunctival oedema [None]
